FAERS Safety Report 7783098-2 (Version None)
Quarter: 2011Q3

REPORT INFORMATION
  Report Type: 
  Country: None (occurrence: None)
  Receive Date: 20110927
  Receipt Date: 20110927
  Transmission Date: 20111222
  Serious: Yes (Hospitalization)
  Sender: FDA-Public Use
  Company Number: None

PATIENT
  Age: 56 Year
  Sex: Female
  Weight: 65 kg

DRUGS (1)
  1. SODIUM FERRIC GLUCONATE [Suspect]
     Dates: start: 20110829, end: 20110829

REACTIONS (3)
  - HYPOTENSION [None]
  - SERUM SICKNESS [None]
  - ARTHRITIS [None]
